FAERS Safety Report 17629327 (Version 1)
Quarter: 2020Q2

REPORT INFORMATION
  Report Type: Spontaneous
  Country: US (occurrence: US)
  Receive Date: 20200406
  Receipt Date: 20200406
  Transmission Date: 20200713
  Serious: No
  Sender: FDA-Public Use
  Company Number: US-BAYER-2020-055329

PATIENT
  Age: 68 Year
  Sex: Female

DRUGS (1)
  1. CLARITIN [Suspect]
     Active Substance: LORATADINE
     Indication: DERMATITIS
     Dosage: 1 DF, QD
     Route: 048
     Dates: start: 20200323

REACTIONS (6)
  - Tinnitus [Unknown]
  - Product use in unapproved indication [Unknown]
  - Off label use [Unknown]
  - Extrasystoles [Not Recovered/Not Resolved]
  - Dizziness [Not Recovered/Not Resolved]
  - Headache [Not Recovered/Not Resolved]

NARRATIVE: CASE EVENT DATE: 20200331
